FAERS Safety Report 9867463 (Version 1)
Quarter: 2014Q1

REPORT INFORMATION
  Report Type: Spontaneous
  Country: US (occurrence: None)
  Receive Date: 20140131
  Receipt Date: 20140131
  Transmission Date: 20141002
  Serious: Yes (Death)
  Sender: FDA-Public Use
  Company Number: 2014P1000647

PATIENT
  Age: 6 Year
  Sex: Male

DRUGS (1)
  1. CLONIDINE [Suspect]

REACTIONS (8)
  - Overdose [None]
  - Product compounding quality issue [None]
  - Unresponsive to stimuli [None]
  - Apnoea [None]
  - Bradycardia [None]
  - Hypotension [None]
  - Brain oedema [None]
  - Haemodynamic instability [None]
